FAERS Safety Report 12690751 (Version 4)
Quarter: 2017Q3

REPORT INFORMATION
  Report Type: Report from Study
  Country: US (occurrence: US)
  Receive Date: 20160826
  Receipt Date: 20170802
  Transmission Date: 20171127
  Serious: Yes (Hospitalization, Other)
  Sender: FDA-Public Use
  Company Number: US-BIOGEN-2016BI00283258

PATIENT
  Sex: Female

DRUGS (2)
  1. PLEGRIDY [Suspect]
     Active Substance: PEGINTERFERON BETA-1A
     Indication: MULTIPLE SCLEROSIS
     Route: 058
     Dates: start: 20150714, end: 20160714
  2. PLEGRIDY [Suspect]
     Active Substance: PEGINTERFERON BETA-1A
     Route: 065
     Dates: start: 20150717

REACTIONS (14)
  - Aphasia [Unknown]
  - Loss of consciousness [Unknown]
  - Limb injury [Unknown]
  - Pain [Not Recovered/Not Resolved]
  - Hysterectomy [Unknown]
  - Amnesia [Unknown]
  - Fall [Recovered/Resolved]
  - Upper limb fracture [Unknown]
  - Musculoskeletal chest pain [Not Recovered/Not Resolved]
  - Scar [Unknown]
  - Peripheral swelling [Unknown]
  - Mobility decreased [Unknown]
  - Neoplasm [Unknown]
  - Concussion [Unknown]

NARRATIVE: CASE EVENT DATE: 2016
